FAERS Safety Report 16635458 (Version 1)
Quarter: 2019Q3

REPORT INFORMATION
  Report Type: Spontaneous
  Country: GB (occurrence: GB)
  Receive Date: 20190726
  Receipt Date: 20190726
  Transmission Date: 20191004
  Serious: Yes (Life-Threatening, Disabling, Other)
  Sender: FDA-Public Use
  Company Number: GB-BAXTER-2019BAX014366

PATIENT
  Age: 78 Year
  Sex: Female
  Weight: 67.95 kg

DRUGS (1)
  1. BUPIVACAINE-CLARIS 5MG/ML SOLUTION FOR INJECTION [Suspect]
     Active Substance: BUPIVACAINE HYDROCHLORIDE
     Indication: EPIDURAL INJECTION
     Route: 008
     Dates: start: 2012, end: 2012

REACTIONS (4)
  - Hypertension [Unknown]
  - Accidental overdose [Unknown]
  - Local anaesthetic systemic toxicity [Not Recovered/Not Resolved]
  - Hypotension [Unknown]

NARRATIVE: CASE EVENT DATE: 2012
